FAERS Safety Report 5363437-2 (Version None)
Quarter: 2007Q2

REPORT INFORMATION
  Report Type: 
  Country: None (occurrence: None)
  Receive Date: 20070620
  Receipt Date: 20070608
  Transmission Date: 20071010
  Serious: Yes (Disabling, Other)
  Sender: FDA-Public Use
  Company Number: PHHO2007US03125

PATIENT
  Age: 59 Year
  Sex: Female
  Weight: 86.4 kg

DRUGS (2)
  1. CERTICAN [Suspect]
     Indication: RENAL TRANSPLANT
     Dosage: 0.75 MG, BID
     Route: 048
     Dates: start: 20060526, end: 20070318
  2. NEORAL [Suspect]
     Indication: RENAL TRANSPLANT
     Dosage: 25 MG, BID
     Route: 048
     Dates: start: 20060526

REACTIONS (4)
  - ARTHRALGIA [None]
  - BONE MARROW OEDEMA [None]
  - DISEASE PROGRESSION [None]
  - OSTEONECROSIS [None]
